FAERS Safety Report 10507569 (Version 1)
Quarter: 2014Q3

REPORT INFORMATION
  Report Type: Spontaneous
  Country: US (occurrence: None)
  Receive Date: 20140915
  Receipt Date: 20140915
  Transmission Date: 20150326
  Serious: Yes (Other)
  Sender: FDA-Public Use
  Company Number: 2013-US-002093

PATIENT
  Age: 57 Year
  Sex: Male
  Weight: 119.7 kg

DRUGS (18)
  1. ATENOLOL. [Concomitant]
     Active Substance: ATENOLOL
  2. LISINOPRIL. [Concomitant]
     Active Substance: LISINOPRIL
  3. TAMSULOSIN [Concomitant]
     Active Substance: TAMSULOSIN
  4. IMITREX [Concomitant]
     Active Substance: SUMATRIPTAN\SUMATRIPTAN SUCCINATE
  5. VITAMIN [Concomitant]
     Active Substance: VITAMINS
  6. HYDROCODONE/ACETAMINOPHEN [Concomitant]
     Active Substance: ACETAMINOPHEN\HYDROCODONE
  7. ONDANSETRON. [Concomitant]
     Active Substance: ONDANSETRON
  8. GABAPENTIN. [Concomitant]
     Active Substance: GABAPENTIN
  9. TOPIRAMATE. [Concomitant]
     Active Substance: TOPIRAMATE
  10. CARBAMAZEPINE. [Concomitant]
     Active Substance: CARBAMAZEPINE
  11. FLUOXETINE [Concomitant]
     Active Substance: FLUOXETINE\FLUOXETINE HYDROCHLORIDE
  12. ATOMOXETINE [Concomitant]
     Active Substance: ATOMOXETINE
  13. TESTOSTERONE. [Concomitant]
     Active Substance: TESTOSTERONE
  14. XYREM [Suspect]
     Active Substance: SODIUM OXYBATE
     Indication: CATAPLEXY
     Route: 048
  15. LEVOTHYROXINE [Concomitant]
     Active Substance: LEVOTHYROXINE
  16. CHLORTHALIDONE. [Concomitant]
     Active Substance: CHLORTHALIDONE
  17. POTASSIUM CHLORIDE. [Concomitant]
     Active Substance: POTASSIUM CHLORIDE
  18. XYREM [Suspect]
     Active Substance: SODIUM OXYBATE
     Indication: NARCOLEPSY
     Route: 048

REACTIONS (7)
  - Suicidal ideation [None]
  - Tremor [None]
  - Drug dose omission [None]
  - Hangover [None]
  - Depression [None]
  - Feeling jittery [None]
  - Memory impairment [None]

NARRATIVE: CASE EVENT DATE: 2013
